FAERS Safety Report 8136971-X (Version None)
Quarter: 2012Q1

REPORT INFORMATION
  Report Type: 
  Country: None (occurrence: None)
  Receive Date: 20120214
  Receipt Date: 20120203
  Transmission Date: 20120608
  Serious: Yes (Other)
  Sender: FDA-Public Use
  Company Number: US-ASTRAZENECA-2011SE36715

PATIENT
  Age: 45 Year
  Sex: Female

DRUGS (67)
  1. LISINOPRIL [Suspect]
     Route: 048
  2. K-DUR/KLORCON [Concomitant]
     Route: 048
  3. LEVAQUIN [Concomitant]
     Route: 048
  4. LASIX [Concomitant]
     Route: 048
  5. PROVENTIL/VENTOLIN [Concomitant]
     Dosage: 90 MCG/ACTUATION 2 PUFFS FOUR TIMES DAILY AS NEEDED
     Route: 055
  6. THEO-DUR [Concomitant]
     Route: 048
  7. MEVACOR [Concomitant]
     Route: 048
  8. ROLAIDS [Concomitant]
  9. BENZOYL PEROXIDE [Concomitant]
     Dosage: TWICE DAILY
     Route: 061
  10. IMDUR [Concomitant]
     Route: 048
  11. ERGOCALCIFEROL [Concomitant]
     Dosage: 50000 UNIT 1 CAPSULE ONCE A WEEK
     Route: 048
  12. XANAX [Concomitant]
     Dosage: 1MG, THREE TIMES A DAY AS NEEDED
     Route: 048
  13. GLUCOTROL [Concomitant]
     Route: 048
  14. LORCET-HD [Concomitant]
     Indication: PAIN
     Route: 048
  15. GUAIFENESIN [Concomitant]
     Route: 048
  16. NOVOLOG [Concomitant]
     Dosage: 100 UNIT/ML
     Route: 058
  17. ASCORBIC ACID [Concomitant]
     Route: 048
  18. BACTROBAN [Concomitant]
     Route: 045
  19. LASIX [Concomitant]
     Route: 048
  20. SINGULAIR [Concomitant]
     Route: 048
  21. VERELAN [Concomitant]
     Route: 048
  22. LOTRISONE [Concomitant]
     Dosage: 1-0.05% TWO TIMES DAILY
     Route: 061
  23. EPIPEN [Concomitant]
     Indication: HYPERSENSITIVITY
     Dosage: 0.3MG/0.3 ML AS NEEDED
     Route: 030
  24. CALMOSEPTINE EX [Concomitant]
  25. PULMICORT [Suspect]
     Dosage: 0.5 MG/ 2 ML TWO TIMES DAILY
     Route: 055
  26. SYNTHROID [Concomitant]
     Route: 048
  27. NIACOR [Concomitant]
     Route: 048
  28. CALMOSEPTINE [Concomitant]
     Dosage: EXTERNALLY ROUTE
  29. ARMODAFINIL [Concomitant]
     Route: 048
  30. BENADRYL [Concomitant]
     Indication: PRURITUS
     Dosage: 25 MG TWO TABS EACH NIGHT AT BEDTIME AS NEEDED
     Route: 048
  31. ASCORBIC ACID [Concomitant]
     Route: 048
  32. FOSAMAX [Concomitant]
     Route: 048
  33. PROVENTIL [Concomitant]
     Dosage: 2 PUFFS FOUR TIMES DAILY AS NEEDED
     Route: 055
  34. FLEXERIL [Concomitant]
     Indication: MUSCLE SPASMS
     Dosage: 10 MG TWO TIMES A DAY AS NEEDED
     Route: 048
  35. HYDROCODON-ACETAMINOPHEN [Concomitant]
     Indication: PAIN
     Dosage: 1 TABLET TWO TIMES DAILY AS NEEDED
     Route: 048
  36. PAXIL [Concomitant]
     Route: 048
  37. ZYRTEC [Concomitant]
     Route: 048
  38. AMBIEN [Concomitant]
     Indication: SLEEP DISORDER
     Dosage: 2 TABLETS AT BEDTIME AS NEEDED
     Route: 048
  39. ZOFRAN [Concomitant]
     Indication: NAUSEA
     Dosage: 8 MG, 1 TABLET EVERY 8 HOURS AS NEEDED
     Route: 048
  40. VENTOLIN [Concomitant]
     Dosage: 2 PUFFS FOUR TIMES DAILY AS NEEDED
     Route: 055
  41. NEXIUM [Suspect]
     Route: 048
  42. PRILOSEC [Suspect]
     Route: 048
  43. COUMADIN [Concomitant]
     Dosage: 7.5 MG ON MONDAY AND FRIDAY, 5 MG ON OTHER DAYS
     Route: 048
  44. IMDUR [Concomitant]
     Route: 048
  45. MYCOSTATIN [Concomitant]
     Dosage: 5 ML AFTER EACH MEAL AND AT BEDTIME
     Route: 048
  46. SPIRIVA [Concomitant]
     Route: 055
  47. NASONEX [Concomitant]
     Dosage: 50 MCG EVERY DAY
     Route: 045
  48. KENALOG [Concomitant]
     Dosage: TWO TIMES DAILY AS NEEDED
     Route: 061
  49. ASPIRIN [Concomitant]
     Route: 048
  50. THYMOCYTE PLUS [Concomitant]
  51. K-DUR/KLORCON [Concomitant]
     Route: 048
  52. ASPIRIN [Concomitant]
     Route: 048
  53. MUCINEX [Concomitant]
     Dosage: EVERY 12 HOURS AS NEEDED
     Route: 048
  54. DUONEB [Concomitant]
     Indication: DYSPNOEA
     Dosage: 0.5 MG + 3 MG EVERY 4 HOURS AS NEEDED
     Route: 055
  55. SENNA PLUS [Concomitant]
     Dosage: 8.6-50 MG DAILY AS NEEDED
     Route: 048
  56. LOPRESSOR [Concomitant]
     Route: 048
  57. PROTONIX [Concomitant]
     Route: 048
  58. PHENERGAN [Concomitant]
     Indication: NAUSEA
     Route: 048
  59. PRINIVIL [Suspect]
     Route: 065
  60. CALAN [Concomitant]
  61. K-DUR, KLORCON M20 [Concomitant]
     Route: 048
  62. MS CONTIN [Concomitant]
     Route: 048
  63. COLACE [Concomitant]
     Route: 048
  64. NITRO-DUR [Concomitant]
     Dosage: AS REQUIRED
     Route: 062
  65. ADVAIR DISKUS 100/50 [Concomitant]
     Dosage: 100-50 MCG/DOSE 1 PUFF EVERY 12 HOURS
     Route: 055
  66. MIRALAX [Concomitant]
     Route: 048
  67. VITAMIN D [Concomitant]
     Route: 048

REACTIONS (24)
  - CHRONIC OBSTRUCTIVE PULMONARY DISEASE [None]
  - CANDIDIASIS [None]
  - INSOMNIA [None]
  - DRUG HYPERSENSITIVITY [None]
  - HYPERCHLORHYDRIA [None]
  - TYPE 2 DIABETES MELLITUS [None]
  - CORONARY ARTERY DISEASE [None]
  - BIPOLAR DISORDER [None]
  - INTERVERTEBRAL DISC DEGENERATION [None]
  - DRUG DOSE OMISSION [None]
  - HIATUS HERNIA [None]
  - ESSENTIAL HYPERTENSION [None]
  - HYPOTHYROIDISM [None]
  - ANAEMIA [None]
  - BACK PAIN [None]
  - SWELLING [None]
  - NAUSEA [None]
  - MALAISE [None]
  - OEDEMA PERIPHERAL [None]
  - DYSPHONIA [None]
  - DEEP VEIN THROMBOSIS [None]
  - PULMONARY EMBOLISM [None]
  - VOMITING [None]
  - LIVER FUNCTION TEST ABNORMAL [None]
